FAERS Safety Report 7942238-2 (Version None)
Quarter: 2011Q4

REPORT INFORMATION
  Report Type: 
  Country: None (occurrence: None)
  Receive Date: 20111122
  Receipt Date: 20110824
  Transmission Date: 20120403
  Serious: Yes (Other)
  Sender: FDA-Public Use
  Company Number: PHHY2011US57022

PATIENT
  Age: 47 Year
  Sex: Female
  Weight: 77.5651 kg

DRUGS (5)
  1. FLEXERIL [Concomitant]
  2. GILENYA [Suspect]
     Indication: RELAPSING-REMITTING MULTIPLE SCLEROSIS
     Dosage: 0.5 MG, QD, ORAL
     Route: 048
     Dates: start: 20110502, end: 20110616
  3. PROVIGIL [Concomitant]
  4. AMBIEN [Concomitant]
  5. TOPAMAX [Concomitant]

REACTIONS (4)
  - MACULAR OEDEMA [None]
  - PHOTOPSIA [None]
  - VISION BLURRED [None]
  - VISUAL ACUITY REDUCED [None]
